FAERS Safety Report 7979807-X (Version None)
Quarter: 2011Q4

REPORT INFORMATION
  Report Type: 
  Country: None (occurrence: None)
  Receive Date: 20111214
  Receipt Date: 20110309
  Transmission Date: 20120403
  Serious: Yes (Hospitalization)
  Sender: FDA-Public Use
  Company Number: DE-ROCHE-511617

PATIENT
  Sex: Female
  Weight: 58 kg

DRUGS (14)
  1. PANTOPRAZOLE [Concomitant]
  2. MULTIVITAMIN ADDITIVE [Concomitant]
  3. ETORICOXIB [Concomitant]
  4. ETORICOXIB [Concomitant]
  5. XELODA [Suspect]
     Indication: COLORECTAL CANCER METASTATIC
     Dosage: UNITS REPORTED AS 500 MG.
     Route: 048
  6. IRINOTECAN HCL [Suspect]
     Dosage: DOSAGE FORM: INFUSION.
     Route: 042
     Dates: start: 20070601, end: 20070619
  7. AMITRIPTYLINE HCL [Concomitant]
  8. VITALIPID [Concomitant]
  9. ERYPO [Concomitant]
  10. FEXOFENADINE [Concomitant]
  11. IRINOTECAN HCL [Suspect]
     Indication: COLORECTAL CANCER METASTATIC
     Dosage: DOSAGE FORM: INFUSION.
     Route: 042
  12. XELODA [Suspect]
     Route: 048
     Dates: start: 20070601, end: 20070619
  13. TPN ELECTROLYTES IN PLASTIC CONTAINER [Concomitant]
  14. MOMETASONE FUROATE [Concomitant]
     Dosage: MOMETASONE SALVE

REACTIONS (2)
  - CEREBRAL INFARCTION [None]
  - ILEUS [None]
